FAERS Safety Report 6765571-9 (Version None)
Quarter: 2010Q2

REPORT INFORMATION
  Report Type: 
  Country: None (occurrence: None)
  Receive Date: 20100611
  Receipt Date: 20100611
  Transmission Date: 20101027
  Serious: Yes (Other)
  Sender: FDA-Public Use
  Company Number: None

PATIENT
  Age: 4 Year
  Sex: Female
  Weight: 22.6799 kg

DRUGS (2)
  1. CHILDREN'S TYLENOL SUSPENSION [Suspect]
     Indication: DRUG THERAPY
     Dosage: 2 TEASPOONS 4 HOURS PO
     Route: 048
     Dates: start: 20091127, end: 20100429
  2. CHILDREN'S MOTRIN [Suspect]
     Indication: DRUG THERAPY
     Dosage: 2 TEASPOONS 6 HOURS PO
     Route: 048
     Dates: start: 20091127, end: 20100429

REACTIONS (7)
  - ABDOMINAL PAIN UPPER [None]
  - DIARRHOEA [None]
  - HAEMATEMESIS [None]
  - PNEUMONIA [None]
  - PRODUCT CONTAMINATION MICROBIAL [None]
  - PRODUCT QUALITY ISSUE [None]
  - PYREXIA [None]
